FAERS Safety Report 20584117 (Version 1)
Quarter: 2022Q1

REPORT INFORMATION
  Report Type: Spontaneous
  Country: US (occurrence: US)
  Receive Date: 20220311
  Receipt Date: 20220311
  Transmission Date: 20220423
  Serious: Yes (Other)
  Sender: FDA-Public Use
  Company Number: US-MYLANLABS-2022M1018631

PATIENT
  Age: 64 Year
  Sex: Female

DRUGS (3)
  1. DOCETAXEL [Suspect]
     Active Substance: DOCETAXEL
     Indication: Breast cancer
     Dosage: UNK UNK, CYCLE (RECEIVED TOTAL 4 CYCLES)
     Route: 065
  2. CYCLOPHOSPHAMIDE [Concomitant]
     Active Substance: CYCLOPHOSPHAMIDE
     Indication: Breast cancer
     Dosage: UNK UNK, CYCLE (RECEIVED TOTAL 4 CYCLES)
     Route: 065
  3. DARBEPOETIN ALFA [Concomitant]
     Active Substance: DARBEPOETIN ALFA
     Indication: Product used for unknown indication
     Dosage: UNK UNK, CYCLE (ADMINISTERED AFTER 1ST AND 4TH CYCLE OF DOCETAXEL AND CYCLOPHOSPHAMIDE)
     Route: 065

REACTIONS (6)
  - Toxicity to various agents [Unknown]
  - Neuropathy peripheral [Unknown]
  - Leukopenia [Unknown]
  - Anaemia [Unknown]
  - Asthenia [Unknown]
  - Erythema [Unknown]
